FAERS Safety Report 9927443 (Version 1)
Quarter: 2014Q1

REPORT INFORMATION
  Report Type: Report from Study
  Country: US (occurrence: US)
  Receive Date: 20140227
  Receipt Date: 20140227
  Transmission Date: 20141002
  Serious: Yes (Death)
  Sender: FDA-Public Use
  Company Number: US-ROCHE-1355104

PATIENT
  Age: 57 Year
  Sex: Male

DRUGS (4)
  1. CATHFLO ACTIVASE [Suspect]
     Indication: MEDICAL DEVICE COMPLICATION
     Route: 065
     Dates: start: 20140127, end: 20140127
  2. CATHFLO ACTIVASE [Suspect]
     Indication: THROMBOTIC CEREBRAL INFARCTION
  3. CATHFLO ACTIVASE [Suspect]
     Indication: VASCULAR GRAFT COMPLICATION
  4. CATHFLO ACTIVASE [Suspect]
     Indication: VASCULAR GRAFT COMPLICATION

REACTIONS (1)
  - Acute respiratory distress syndrome [Fatal]
